FAERS Safety Report 5037505-9 (Version None)
Quarter: 2006Q2

REPORT INFORMATION
  Report Type: 
  Country: None (occurrence: None)
  Receive Date: 20060609
  Receipt Date: 20060324
  Transmission Date: 20061013
  Serious: Yes (Life-Threatening, Hospitalization)
  Sender: FDA-Public Use
  Company Number: 043

PATIENT
  Sex: Male

DRUGS (6)
  1. FAZACLO ODT [Suspect]
     Indication: SCHIZOAFFECTIVE DISORDER
     Dosage: 100 MG BID PO
     Route: 048
     Dates: start: 20060104, end: 20060301
  2. FAZACLO ODT [Suspect]
     Indication: SCHIZOAFFECTIVE DISORDER
     Dosage: 50 MG BID PO
     Route: 048
     Dates: start: 20060104, end: 20060301
  3. FLUOXETINE [Concomitant]
  4. NISOLDIPINE [Concomitant]
  5. MYLANTA(PRN) [Concomitant]
  6. ACETAMINOPHEN (PRN) [Concomitant]

REACTIONS (1)
  - AGRANULOCYTOSIS [None]
